FAERS Safety Report 11870703 (Version 1)
Quarter: 2015Q4

REPORT INFORMATION
  Report Type: Spontaneous
  Country: JP (occurrence: JP)
  Receive Date: 20151228
  Receipt Date: 20151228
  Transmission Date: 20160305
  Serious: Yes (Death)
  Sender: FDA-Public Use
  Company Number: JP-009507513-1512JPN011568

PATIENT
  Age: 55 Year
  Sex: Male
  Weight: 66 kg

DRUGS (20)
  1. FENTANYL. [Concomitant]
     Active Substance: FENTANYL
     Indication: SEDATION
     Dosage: DAILY DOSAGE UNKNOWN
     Route: 042
     Dates: start: 20151014, end: 20151019
  2. DOBUPUM [Concomitant]
     Active Substance: DOBUTAMINE HYDROCHLORIDE
     Indication: NEUROGENIC SHOCK
  3. PITRESSIN [Concomitant]
     Active Substance: VASOPRESSIN
     Indication: THERMAL BURN
     Dosage: DAILY DOSAGE UNKNOWN
     Route: 042
     Dates: start: 20151017, end: 20151018
  4. TEICOPLANIN [Concomitant]
     Active Substance: TEICOPLANIN
     Indication: STAPHYLOCOCCAL INFECTION
     Dosage: 800 MG, QD
     Route: 042
     Dates: start: 20151017, end: 20151018
  5. ENTERONON R [Concomitant]
     Indication: ENTEROCOLITIS
     Dosage: 1 G, TID, FORMULATION: POW
     Route: 050
     Dates: start: 20151015, end: 20151020
  6. RECOMODULIN [Concomitant]
     Active Substance: THROMBOMODULIN ALFA
     Indication: DISSEMINATED INTRAVASCULAR COAGULATION
     Dosage: 19200 THOUSAND-MILION UNIT
     Route: 051
     Dates: start: 20151016, end: 20151020
  7. GASTER [Concomitant]
     Active Substance: FAMOTIDINE
     Indication: PROPHYLAXIS
     Dosage: 20 MG, QD
     Route: 051
     Dates: start: 20151016, end: 20151020
  8. MIYA-BM [Concomitant]
     Active Substance: CLOSTRIDIUM BUTYRICUM SPORES STRAIN M-55
     Indication: ENTEROCOLITIS
     Dosage: 1 G, QD, VIA TUBE, FORMULATION: FGR
     Route: 050
     Dates: start: 20151015, end: 20151020
  9. BLOOD, PLASMA [Concomitant]
     Indication: COAGULOPATHY
     Dosage: 6 UNDER 10000UNIT, QD
     Route: 051
     Dates: start: 20151017, end: 20151017
  10. CANCIDAS [Suspect]
     Active Substance: CASPOFUNGIN ACETATE
     Indication: PROPHYLAXIS
     Dosage: 50 MG, QD
     Route: 041
     Dates: start: 20151018, end: 20151019
  11. ONOACT [Concomitant]
     Active Substance: LANDIOLOL HYDROCHLORIDE
     Indication: TACHYCARDIA
     Dosage: DAILY DOSAGE UNKNOWN
     Route: 042
     Dates: start: 20151017, end: 20151018
  12. PITRESSIN [Concomitant]
     Active Substance: VASOPRESSIN
     Indication: NEUROGENIC SHOCK
  13. CANCIDAS [Suspect]
     Active Substance: CASPOFUNGIN ACETATE
     Indication: PROPHYLAXIS
     Dosage: 70 MG, QD
     Route: 041
     Dates: start: 20151017, end: 20151017
  14. PROPOFOL. [Concomitant]
     Active Substance: PROPOFOL
     Indication: SEDATION
     Dosage: DAILY DOSAGE UNKNOWN
     Route: 042
     Dates: start: 20151014, end: 20151019
  15. BLOOD CELLS, RED [Concomitant]
     Active Substance: HUMAN BLOOD CELLS
     Indication: ANAEMIA
     Dosage: 6 UNDER 1000UNIT, QD
     Route: 051
     Dates: start: 20151017, end: 20151019
  16. NOREPINEPHRINE [Concomitant]
     Active Substance: NOREPINEPHRINE\NOREPINEPHRINE BITARTRATE
     Indication: NEUROGENIC SHOCK
     Dosage: DAILY DOSAGE UNKNOWN
     Route: 042
     Dates: start: 20151014, end: 20151019
  17. DOBUPUM [Concomitant]
     Active Substance: DOBUTAMINE HYDROCHLORIDE
     Indication: THERMAL BURN
     Dosage: DAILY DOSAGE UNKNOWN
     Route: 042
     Dates: start: 20151015, end: 20151019
  18. MAINTATE [Concomitant]
     Active Substance: BISOPROLOL FUMARATE
     Indication: TACHYCARDIA
     Dosage: 5 MG, QD, VIA TUBE
     Route: 050
     Dates: start: 20151017, end: 20151020
  19. NOREPINEPHRINE [Concomitant]
     Active Substance: NOREPINEPHRINE\NOREPINEPHRINE BITARTRATE
     Indication: THERMAL BURN
  20. MEROPENEM. [Concomitant]
     Active Substance: MEROPENEM
     Indication: SEPSIS
     Dosage: 1 G, BID
     Route: 051
     Dates: start: 20151017, end: 20151020

REACTIONS (1)
  - Death [Fatal]

NARRATIVE: CASE EVENT DATE: 20151020
